FAERS Safety Report 22322224 (Version 1)
Quarter: 2023Q2

REPORT INFORMATION
  Report Type: Report from Study
  Country: US (occurrence: US)
  Receive Date: 20230516
  Receipt Date: 20230516
  Transmission Date: 20230721
  Serious: Yes (Other)
  Sender: FDA-Public Use
  Company Number: US-ABBVIE-4767597

PATIENT
  Sex: Female

DRUGS (1)
  1. SKYRIZI [Suspect]
     Active Substance: RISANKIZUMAB-RZAA
     Indication: Crohn^s disease
     Route: 058
     Dates: start: 20221222

REACTIONS (9)
  - Paralysis [Unknown]
  - Headache [Unknown]
  - Influenza like illness [Unknown]
  - Feeding disorder [Unknown]
  - Vomiting [Unknown]
  - Haemorrhage [Unknown]
  - Adverse drug reaction [Unknown]
  - Unevaluable event [Unknown]
  - Arthralgia [Unknown]
